FAERS Safety Report 17564895 (Version 1)
Quarter: 2020Q1

REPORT INFORMATION
  Report Type: Spontaneous
  Country: CN (occurrence: CN)
  Receive Date: 20200320
  Receipt Date: 20200320
  Transmission Date: 20200409
  Serious: Yes (Other)
  Sender: FDA-Public Use
  Company Number: CN-ROCHE-2571369

PATIENT
  Age: 62 Year
  Sex: Male

DRUGS (4)
  1. TARCEVA [Suspect]
     Active Substance: ERLOTINIB HYDROCHLORIDE
     Indication: LUNG ADENOCARCINOMA
     Dosage: FIRST LINE TREATMENT
     Route: 048
     Dates: start: 2018
  2. AVASTIN [Suspect]
     Active Substance: BEVACIZUMAB
     Indication: LUNG ADENOCARCINOMA
     Dosage: SECOND LINE TREATMENT
     Route: 041
     Dates: start: 2018
  3. APREPITANT. [Concomitant]
     Active Substance: APREPITANT
     Indication: LUNG ADENOCARCINOMA
     Dosage: DAY 1, 80 MG DAY 2-4
     Route: 065
     Dates: start: 2018
  4. TARCEVA [Suspect]
     Active Substance: ERLOTINIB HYDROCHLORIDE
     Dosage: SECOND LINE TREATMENT
     Route: 048
     Dates: start: 2018

REACTIONS (4)
  - Pleural effusion [Unknown]
  - Rash [Recovering/Resolving]
  - Pericardial effusion [Unknown]
  - Diarrhoea [Unknown]

NARRATIVE: CASE EVENT DATE: 2018
